FAERS Safety Report 25888563 (Version 1)
Quarter: 2025Q4

REPORT INFORMATION
  Report Type: Report from Study
  Country: PK (occurrence: PK)
  Receive Date: 20251007
  Receipt Date: 20251007
  Transmission Date: 20260119
  Serious: Yes (Death)
  Sender: ROCHE
  Company Number: PK-ROCHE-10000399431

PATIENT
  Age: 41 Year
  Sex: Female

DRUGS (2)
  1. HERCEPTIN [Suspect]
     Active Substance: TRASTUZUMAB
     Indication: Breast cancer metastatic
     Route: 042
     Dates: start: 20250224
  2. HERCEPTIN [Suspect]
     Active Substance: TRASTUZUMAB
     Route: 042

REACTIONS (5)
  - Pain [Unknown]
  - Vomiting [Unknown]
  - Peripheral swelling [Unknown]
  - General physical health deterioration [Unknown]
  - Disease progression [Fatal]

NARRATIVE: CASE EVENT DATE: 20250916
